FAERS Safety Report 10344169 (Version 1)
Quarter: 2014Q3

REPORT INFORMATION
  Report Type: Spontaneous
  Country: FR (occurrence: None)
  Receive Date: 20140724
  Receipt Date: 20140724
  Transmission Date: 20150326
  Serious: Yes (Hospitalization)
  Sender: FDA-Public Use
  Company Number: 2014-002052

PATIENT
  Age: 29 Year
  Sex: Female
  Weight: 83 kg

DRUGS (5)
  1. ACTONEL [Suspect]
     Active Substance: RISEDRONATE SODIUM
     Route: 048
     Dates: start: 20131024, end: 20140203
  2. RIFINAH [Suspect]
     Active Substance: ISONIAZID\RIFAMPIN
     Route: 048
     Dates: start: 20131024, end: 201401
  3. RITUXIMAB [Suspect]
     Active Substance: RITUXIMAB
     Indication: ANTISYNTHETASE SYNDROME
     Dosage: 1 CYCLE, INTRAVENOUS
     Route: 042
     Dates: start: 20131107
  4. BACTRIM [Suspect]
     Active Substance: SULFAMETHOXAZOLE\TRIMETHOPRIM
     Route: 048
     Dates: start: 20131024, end: 20140203
  5. ESOMEPRAZOLE MAGNESIUM. [Suspect]
     Active Substance: ESOMEPRAZOLE MAGNESIUM
     Route: 048
     Dates: start: 20131024, end: 20140203

REACTIONS (2)
  - Hepatocellular injury [None]
  - Vomiting [None]

NARRATIVE: CASE EVENT DATE: 20131211
